FAERS Safety Report 7473853-0 (Version None)
Quarter: 2011Q2

REPORT INFORMATION
  Report Type: 
  Country: None (occurrence: None)
  Receive Date: 20110503
  Receipt Date: 20110428
  Transmission Date: 20111010
  Serious: Yes (Death, Life-Threatening, Hospitalization)
  Sender: FDA-Public Use
  Company Number: 2011SP018847

PATIENT
  Age: 79 Year
  Sex: Female

DRUGS (7)
  1. IRBESARTAN + HYDROCHLOROTHIAZIDE [Concomitant]
  2. PRAVASTATIN SODIUM [Concomitant]
  3. PERINDOPRIL ERBUMINE [Concomitant]
  4. OMEPRAZOLE [Concomitant]
  5. LANTUS [Concomitant]
  6. ORGARAN [Suspect]
     Indication: HEPARIN-INDUCED THROMBOCYTOPENIA
     Dosage: 2250 IU; BID; SC
     Route: 058
     Dates: start: 20101101, end: 20110209
  7. EXELON [Concomitant]

REACTIONS (1)
  - CEREBRAL HAEMATOMA [None]
